FAERS Safety Report 20861390 (Version 1)
Quarter: 2022Q2

REPORT INFORMATION
  Report Type: Spontaneous
  Country: CN (occurrence: CN)
  Receive Date: 20220523
  Receipt Date: 20220523
  Transmission Date: 20220721
  Serious: Yes (Other)
  Sender: FDA-Public Use
  Company Number: CN-BAYER-2022A071783

PATIENT
  Sex: Female

DRUGS (1)
  1. YASMIN [Suspect]
     Active Substance: DROSPIRENONE\ETHINYL ESTRADIOL
     Route: 048

REACTIONS (5)
  - Pneumonia [None]
  - Intermenstrual bleeding [None]
  - Abnormal withdrawal bleeding [None]
  - Pharyngitis [None]
  - Diarrhoea [None]

NARRATIVE: CASE EVENT DATE: 20220501
